FAERS Safety Report 9364479 (Version 1)
Quarter: 2013Q2

REPORT INFORMATION
  Report Type: Spontaneous
  Country: FR (occurrence: None)
  Receive Date: 20130619
  Receipt Date: 20130619
  Transmission Date: 20140414
  Serious: Yes (Other)
  Sender: FDA-Public Use
  Company Number: SYM-2013-04932

PATIENT
  Age: 80 Year
  Sex: Female

DRUGS (8)
  1. FLAGYL [Suspect]
     Indication: CHOLANGITIS
     Route: 048
     Dates: start: 20130521
  2. ROCEPHINE [Suspect]
     Indication: CHOLANGITIS
     Dates: start: 20130521
  3. PREVISCAN (FLUINDIONE) (FLUINDIONE) [Concomitant]
  4. MIANSERINE (MIANSERIN HYDROCHLORIDE) (MIANSERIN HYDROCHLORIDE) [Concomitant]
  5. EUPANTOL (PANTOPRAZOLE) (PANTOPRAZOLE) [Concomitant]
  6. CORDARONE (AMIODARONE HYDROCHLORIDE) (AMIODARONE HYDROCHLORIDE) [Concomitant]
  7. DAFALGAN (PARACETAMOL) (PARACETAMOL) [Concomitant]
  8. LOVENOX (ENOXAPARIN SODIUM) (ENOXAPARIN SODIUM) [Concomitant]

REACTIONS (1)
  - Prothrombin time shortened [None]
